FAERS Safety Report 20216305 (Version 1)
Quarter: 2021Q4

REPORT INFORMATION
  Report Type: Spontaneous
  Country: US (occurrence: None)
  Receive Date: 20211221
  Receipt Date: 20211221
  Transmission Date: 20220303
  Serious: No
  Sender: FDA-Public Use
  Company Number: None

PATIENT
  Age: 72 Year
  Sex: Female

DRUGS (3)
  1. HUMIRA [Suspect]
     Active Substance: ADALIMUMAB
     Indication: Osteoarthritis
     Dosage: OTHER QUANTITY : 40 MG/0.8ML ;?FREQUENCY : EVERY OTHER WEEK;?
     Route: 058
     Dates: start: 20180201
  2. CALCIUM CHW 500-10 [Concomitant]
  3. MULTIVITAMIN TAB [Concomitant]

REACTIONS (2)
  - COVID-19 [None]
  - Osteoarthritis [None]

NARRATIVE: CASE EVENT DATE: 20211103
